FAERS Safety Report 5086046-1 (Version None)
Quarter: 2006Q3

REPORT INFORMATION
  Report Type: 
  Country: None (occurrence: None)
  Receive Date: 20060817
  Receipt Date: 20060809
  Transmission Date: 20061208
  Serious: Yes (Other)
  Sender: FDA-Public Use
  Company Number: IT-GDP-0613460

PATIENT
  Age: 26 Year
  Sex: Female

DRUGS (1)
  1. BENZOYL PEROXIDE [Suspect]
     Indication: ACNE

REACTIONS (1)
  - ANGIONEUROTIC OEDEMA [None]
